FAERS Safety Report 4644914-6 (Version None)
Quarter: 2005Q2

REPORT INFORMATION
  Report Type: 
  Country: None (occurrence: None)
  Receive Date: 20050422
  Receipt Date: 20050414
  Transmission Date: 20051028
  Serious: Yes (Death, Other)
  Sender: FDA-Public Use
  Company Number: 2005060714

PATIENT
  Age: 70 Year
  Sex: Male

DRUGS (1)
  1. CITALOR (ATORVASTATIN) [Suspect]
     Indication: DYSLIPIDAEMIA
     Dosage: 10  MG (10 MG 1 IN 1 D), ORAL
     Route: 048
     Dates: start: 20031001, end: 20041201

REACTIONS (2)
  - GASTRIC CANCER [None]
  - PANCREATIC CARCINOMA [None]
